FAERS Safety Report 6342308-9 (Version None)
Quarter: 2009Q3

REPORT INFORMATION
  Report Type: 
  Country: None (occurrence: None)
  Receive Date: 20090907
  Receipt Date: 20070720
  Transmission Date: 20100115
  Serious: Yes (Other)
  Sender: FDA-Public Use
  Company Number: US-ASTRAZENECA-2006UW24331

PATIENT
  Age: 38 Year
  Sex: Female
  Weight: 98 kg

DRUGS (17)
  1. SEROQUEL [Suspect]
     Indication: NERVOUSNESS
     Route: 048
     Dates: start: 20040723
  2. ABILIFY [Concomitant]
     Dates: start: 20030304
  3. GEODON [Concomitant]
     Dates: start: 20040723
  4. HALDOL [Concomitant]
     Dosage: 4 MG - 10 MG
     Dates: start: 19960202
  5. RISPERDAL [Concomitant]
     Dates: start: 20030711
  6. ZYPREXA [Concomitant]
     Dates: start: 20030528
  7. ELAVIL [Concomitant]
     Dosage: 50 GMS ONE TO TWO QHS PRN
     Dates: start: 19960202
  8. ATENOLOL [Concomitant]
     Dates: start: 19960202
  9. CAPOTEN [Concomitant]
     Dates: start: 19960202
  10. BUSPAR [Concomitant]
     Dates: start: 20030304
  11. PAXIL [Concomitant]
     Dates: start: 20030304
  12. TRANXENE [Concomitant]
     Dates: start: 19961026
  13. MIDRIN [Concomitant]
     Indication: MIGRAINE
     Dates: start: 20070507
  14. ATARAX [Concomitant]
     Dates: start: 20050915
  15. VIOXX [Concomitant]
     Route: 048
     Dates: start: 20030303
  16. TOPAMAX [Concomitant]
     Indication: HEADACHE
     Dates: start: 20070507
  17. NEURONTIN [Concomitant]
     Indication: NEUROPATHY PERIPHERAL
     Dates: start: 20070507

REACTIONS (3)
  - DIABETES MELLITUS [None]
  - NEUROPATHY PERIPHERAL [None]
  - TYPE 2 DIABETES MELLITUS [None]
